FAERS Safety Report 5967632-0 (Version None)
Quarter: 2008Q4

REPORT INFORMATION
  Report Type: 
  Country: None (occurrence: None)
  Receive Date: 20081126
  Receipt Date: 20081117
  Transmission Date: 20090506
  Serious: Yes (Disabling)
  Sender: FDA-Public Use
  Company Number: PHEH2008US08999

PATIENT
  Sex: Female

DRUGS (7)
  1. RECLAST [Suspect]
     Indication: SENILE OSTEOPOROSIS
     Dosage: 5 MG ONCE YEARLY
     Route: 042
     Dates: start: 20080919
  2. ATENOLOL [Concomitant]
     Dosage: 50 MG, QD
     Route: 048
  3. FLECAINIDE ACETATE [Concomitant]
     Dosage: 100 MG, QD
     Route: 048
  4. WARFARIN SODIUM [Concomitant]
     Dosage: 5 MG, QD
     Route: 048
  5. XALATAN [Concomitant]
     Dosage: UNK GTT, QD
     Route: 047
  6. TRUSOPT [Concomitant]
     Dosage: UNK GTT, QD
     Route: 047
  7. CALTRATE + D                       /00944201/ [Concomitant]
     Dosage: 600 MG, BID

REACTIONS (1)
  - TINNITUS [None]
